FAERS Safety Report 6841763-5 (Version None)
Quarter: 2010Q3

REPORT INFORMATION
  Report Type: 
  Country: None (occurrence: None)
  Receive Date: 20100709
  Receipt Date: 20100701
  Transmission Date: 20110219
  Serious: Yes (Disabling)
  Sender: FDA-Public Use
  Company Number: 2010GR_BP1006

PATIENT
  Age: 40 Year
  Sex: Female

DRUGS (1)
  1. TERBINAFINE HCL [Suspect]
     Indication: ONYCHOMYCOSIS
     Dosage: 250 MG (250 MG, 1 IN 1 D)
     Dates: start: 20100404, end: 20100531

REACTIONS (3)
  - AGEUSIA [None]
  - IMPAIRED WORK ABILITY [None]
  - PAROSMIA [None]
